FAERS Safety Report 6309947-2 (Version None)
Quarter: 2009Q3

REPORT INFORMATION
  Report Type: 
  Country: None (occurrence: None)
  Receive Date: 20090814
  Receipt Date: 20090806
  Transmission Date: 20100115
  Serious: Yes (Other)
  Sender: FDA-Public Use
  Company Number: B0588553A

PATIENT
  Sex: Female
  Weight: 68 kg

DRUGS (8)
  1. DOXYCYCLINE [Suspect]
     Indication: DRUG USE FOR UNKNOWN INDICATION
     Dosage: 100MG PER DAY
     Route: 048
     Dates: start: 20090501, end: 20090509
  2. VENTOLIN [Suspect]
     Indication: DRUG USE FOR UNKNOWN INDICATION
     Dosage: 200MCG FOUR TIMES PER DAY
     Route: 055
     Dates: start: 20090501
  3. ASCAL [Concomitant]
     Dosage: 100MG PER DAY
     Route: 048
  4. FUROSEMIDE [Concomitant]
     Dosage: 40MG PER DAY
     Route: 048
  5. SPIRONOLACTONE [Concomitant]
     Dosage: 25MG PER DAY
     Route: 048
  6. CARVEDILOL [Concomitant]
     Dosage: 12.5MG TWICE PER DAY
     Route: 048
  7. ACCUPRIL [Concomitant]
     Dosage: 20MG PER DAY
     Route: 048
  8. PRAVASTATIN [Concomitant]
     Dosage: 10MG PER DAY
     Route: 048

REACTIONS (3)
  - AGEUSIA [None]
  - ANOSMIA [None]
  - MUSCLE SPASMS [None]
